FAERS Safety Report 7134303-7 (Version None)
Quarter: 2010Q4

REPORT INFORMATION
  Report Type: 
  Country: None (occurrence: None)
  Receive Date: 20101117
  Receipt Date: 20101104
  Transmission Date: 20110411
  Serious: Yes (Hospitalization)
  Sender: FDA-Public Use
  Company Number: 010731

PATIENT
  Age: 88 Year
  Sex: Male
  Weight: 65.9 kg

DRUGS (8)
  1. MACUGEN [Suspect]
     Indication: MACULAR DEGENERATION
     Dosage: 0.3MG, ITRAOCULAR
     Route: 031
     Dates: start: 20090317, end: 20090317
  2. MACUGEN [Suspect]
     Indication: MACULAR DEGENERATION
     Dosage: 0.3MG, ITRAOCULAR
     Route: 031
     Dates: start: 20090915, end: 20090915
  3. MACUGEN [Suspect]
     Indication: MACULAR DEGENERATION
     Dosage: 0.3MG, ITRAOCULAR
     Route: 031
     Dates: start: 20091105, end: 20091105
  4. ASPIRIN [Suspect]
     Indication: MYOCARDIAL INFARCTION
     Dosage: 100MG, 1X/DAY, ORAL
     Route: 048
  5. CANDESARTAN CILEXETIL [Concomitant]
  6. ALLOPURINOL [Concomitant]
  7. CARVEDILOL [Concomitant]
  8. AMLODIPINE BESYLATE [Concomitant]

REACTIONS (1)
  - VITREOUS HAEMORRHAGE [None]
